FAERS Safety Report 9601303 (Version 1)
Quarter: 2013Q4

REPORT INFORMATION
  Report Type: Spontaneous
  Country: US (occurrence: US)
  Receive Date: 20131006
  Receipt Date: 20131006
  Transmission Date: 20140711
  Serious: No
  Sender: FDA-Public Use
  Company Number: US-009507513-1309USA012451

PATIENT
  Sex: Female

DRUGS (6)
  1. ZOCOR [Suspect]
     Indication: BLOOD CHOLESTEROL
     Dosage: ONE TABLET MY MOUTH EVERY
     Route: 048
     Dates: start: 1998
  2. CRESTOR [Concomitant]
  3. LEVOTHYROXINE SODIUM [Concomitant]
  4. ALLEGRA [Concomitant]
  5. CLARITIN [Concomitant]
     Route: 048
  6. OMEPRAZOLE [Concomitant]

REACTIONS (4)
  - Bronchitis [Recovering/Resolving]
  - Erythema [Recovering/Resolving]
  - Muscle spasms [Recovering/Resolving]
  - Pruritus [Recovered/Resolved]
